FAERS Safety Report 9236799 (Version 2)
Quarter: 2023Q2

REPORT INFORMATION
  Report Type: Other
  Country: PT (occurrence: PT)
  Receive Date: 20130417
  Receipt Date: 20230511
  Transmission Date: 20230722
  Serious: Yes (Other)
  Sender: FDA-Public Use
  Company Number: PT-ROCHE-1211187

PATIENT

DRUGS (5)
  1. CEFTRIAXONE [Suspect]
     Active Substance: CEFTRIAXONE
     Indication: HIV infection
     Route: 065
  2. LOPINAVIR\RITONAVIR [Suspect]
     Active Substance: LOPINAVIR\RITONAVIR
     Indication: HIV infection
     Route: 065
  3. RITONAVIR [Suspect]
     Active Substance: RITONAVIR
     Indication: HIV infection
     Route: 065
  4. INDINAVIR [Suspect]
     Active Substance: INDINAVIR
     Indication: HIV infection
     Route: 065
  5. NELFINAVIR [Suspect]
     Active Substance: NELFINAVIR
     Indication: HIV infection
     Route: 065

REACTIONS (8)
  - Diarrhoea [Unknown]
  - Alcohol intolerance [Unknown]
  - Nephrolithiasis [Unknown]
  - Gastrointestinal disorder [Unknown]
  - Dyslipidaemia [Unknown]
  - Hyperlactacidaemia [Unknown]
  - Gamma-glutamyltransferase increased [Unknown]
  - Drug interaction [Unknown]
